FAERS Safety Report 6381250-4 (Version None)
Quarter: 2009Q3

REPORT INFORMATION
  Report Type: 
  Country: None (occurrence: None)
  Receive Date: 20090929
  Receipt Date: 20090917
  Transmission Date: 20100115
  Serious: Yes (Hospitalization, Disabling, Other)
  Sender: FDA-Public Use
  Company Number: US-PFIZER INC-2004012957

PATIENT
  Sex: Male
  Weight: 85 kg

DRUGS (9)
  1. NEURONTIN [Suspect]
     Indication: BIPOLAR DISORDER
     Dosage: 300 MG, 2X/DAY
     Route: 048
     Dates: start: 20000101, end: 20020101
  2. NEURONTIN [Suspect]
     Indication: MAJOR DEPRESSION
  3. KLONOPIN [Concomitant]
  4. TRILEPTAL [Concomitant]
  5. PROZAC [Concomitant]
     Dosage: UNK
  6. REVIA [Concomitant]
  7. AMBIEN [Concomitant]
  8. VICODIN [Concomitant]
  9. ULTRAM [Concomitant]

REACTIONS (7)
  - BIPOLAR DISORDER [None]
  - DISABILITY [None]
  - GUN SHOT WOUND [None]
  - INJURY [None]
  - PAIN [None]
  - SUICIDE ATTEMPT [None]
  - UNEVALUABLE EVENT [None]
